FAERS Safety Report 10444241 (Version 1)
Quarter: 2014Q3

REPORT INFORMATION
  Report Type: Spontaneous
  Country: US (occurrence: None)
  Receive Date: 20140909
  Receipt Date: 20140909
  Transmission Date: 20150326
  Serious: Yes (Hospitalization)
  Sender: FDA-Public Use
  Company Number: None

PATIENT
  Age: 68 Year
  Sex: Male
  Weight: 81.7 kg

DRUGS (4)
  1. BUSULFAN [Suspect]
     Active Substance: BUSULFAN
  2. FLUDARABINE PHOSPHATE. [Suspect]
     Active Substance: FLUDARABINE PHOSPHATE
  3. METHOTREXATE [Suspect]
     Active Substance: METHOTREXATE
  4. TACROLIMUS. [Suspect]
     Active Substance: TACROLIMUS
     Indication: ACUTE MYELOID LEUKAEMIA

REACTIONS (9)
  - Stem cell transplant [None]
  - Lung infection [None]
  - Pulmonary necrosis [None]
  - Pancytopenia [None]
  - Endotracheal intubation complication [None]
  - Pulmonary haemorrhage [None]
  - Bradycardia [None]
  - Pseudomonal sepsis [None]
  - Hypotension [None]

NARRATIVE: CASE EVENT DATE: 20120401
